FAERS Safety Report 8802370 (Version 1)
Quarter: 2012Q4

REPORT INFORMATION
  Report Type: 
  Country: PG (occurrence: PG)
  Receive Date: 20120921
  Receipt Date: 20120921
  Transmission Date: 20130627
  Serious: Yes (Death)
  Sender: FDA-Public Use
  Company Number: PHHY2010PG094482

PATIENT
  Sex: Male

DRUGS (1)
  1. GLIVEC [Suspect]
     Dates: start: 20091117

REACTIONS (3)
  - Staphylococcal skin infection [Fatal]
  - Sepsis [Fatal]
  - Shock [Fatal]
